FAERS Safety Report 5848969-2 (Version None)
Quarter: 2008Q3

REPORT INFORMATION
  Report Type: 
  Country: None (occurrence: None)
  Receive Date: 20080819
  Receipt Date: 20080814
  Transmission Date: 20090109
  Serious: Yes (Hospitalization)
  Sender: FDA-Public Use
  Company Number: PHHO2006CN08390

PATIENT
  Sex: Male

DRUGS (1)
  1. LAMIVUDINE COMP-LAM+ [Suspect]
     Indication: HEPATITIS B
     Dosage: 100MG
     Route: 048
     Dates: start: 20040820, end: 20060601

REACTIONS (9)
  - ALANINE AMINOTRANSFERASE INCREASED [None]
  - ASPARTATE AMINOTRANSFERASE INCREASED [None]
  - BLOOD BILIRUBIN INCREASED [None]
  - CONDITION AGGRAVATED [None]
  - DECREASED APPETITE [None]
  - DUODENAL ULCER [None]
  - ERUCTATION [None]
  - HEPATITIS B [None]
  - MALAISE [None]
